FAERS Safety Report 15033831 (Version 1)
Quarter: 2018Q2

REPORT INFORMATION
  Report Type: Spontaneous
  Country: US (occurrence: US)
  Receive Date: 20180619
  Receipt Date: 20180619
  Transmission Date: 20180711
  Serious: No
  Sender: FDA-Public Use
  Company Number: US-BRISTOL-MYERS SQUIBB COMPANY-BMS-2018-054268

PATIENT
  Sex: Female
  Weight: 113.38 kg

DRUGS (2)
  1. LOVENOX [Suspect]
     Active Substance: ENOXAPARIN SODIUM
     Indication: THROMBOSIS
     Dosage: 80 MG, UNK
     Route: 065
     Dates: start: 201804, end: 201804
  2. ELIQUIS [Suspect]
     Active Substance: APIXABAN
     Indication: DEEP VEIN THROMBOSIS
     Dosage: 5 MG, BID
     Route: 048
     Dates: start: 201804, end: 201805

REACTIONS (4)
  - Peripheral swelling [Unknown]
  - Off label use [Unknown]
  - Musculoskeletal stiffness [Unknown]
  - Gait disturbance [Unknown]
